FAERS Safety Report 8488017-1 (Version None)
Quarter: 2012Q3

REPORT INFORMATION
  Report Type: 
  Country: None (occurrence: None)
  Receive Date: 20120705
  Receipt Date: 20120702
  Transmission Date: 20120928
  Serious: Yes (Other)
  Sender: FDA-Public Use
  Company Number: PHEH2012US013088

PATIENT
  Sex: Male
  Weight: 136.5 kg

DRUGS (8)
  1. GLEEVEC [Suspect]
     Dosage: 400 MG, QD
     Route: 048
  2. COZAAR [Concomitant]
     Dosage: 25 MG, UNK
     Route: 048
  3. MULTI-VITAMINS [Concomitant]
  4. PRAVASTATIN [Concomitant]
     Dosage: 10 MG, UNK
     Route: 048
  5. RANITIDINE [Concomitant]
     Dosage: 75 MG, UNK
     Route: 048
  6. AMLODIPINE [Concomitant]
     Dosage: 2.5 MG, UNK
     Route: 048
  7. TRADJENTA [Concomitant]
     Dosage: 5 MG, UNK
     Route: 048
  8. GLIPIZIDE [Concomitant]
     Dosage: 5 MG, UNK
     Route: 048

REACTIONS (1)
  - DIABETES MELLITUS [None]
